FAERS Safety Report 10409669 (Version 4)
Quarter: 2014Q4

REPORT INFORMATION
  Report Type: Report from Study
  Country: US (occurrence: US)
  Receive Date: 20140826
  Receipt Date: 20141124
  Transmission Date: 20150528
  Serious: Yes (Hospitalization, Other)
  Sender: FDA-Public Use
  Company Number: US-ACTELION-A-US2014-104120

PATIENT
  Age: 74 Year
  Sex: Male

DRUGS (8)
  1. ASPIRIN. [Concomitant]
     Active Substance: ASPIRIN
  2. REMODULIN [Suspect]
     Active Substance: TREPROSTINIL
     Indication: PRODUCT USED FOR UNKNOWN INDICATION
     Dosage: 11.5 NG/KG, PER MIN
     Route: 065
     Dates: start: 20131031
  3. SILDENAFIL. [Concomitant]
     Active Substance: SILDENAFIL
     Dosage: 20 MG, TID
     Dates: start: 20110421
  4. COUMADIN [Concomitant]
     Active Substance: WARFARIN SODIUM
  5. HYZAAR [Concomitant]
     Active Substance: HYDROCHLOROTHIAZIDE\LOSARTAN POTASSIUM
     Dosage: UNK, QD
     Dates: start: 20110517
  6. TRACLEER [Suspect]
     Active Substance: BOSENTAN\BOSENTAN MONOHYDRATE
     Indication: PULMONARY HYPERTENSION
     Dosage: 125 MG, BID
     Route: 048
     Dates: start: 200402
  7. ZAROXOLYN [Concomitant]
     Active Substance: METOLAZONE
     Dosage: 2.5 MG, TWICE WEEKLY
     Dates: start: 201208
  8. TORSEMIDE. [Concomitant]
     Active Substance: TORSEMIDE
     Dosage: 50 MG, QD
     Dates: start: 20110527

REACTIONS (8)
  - Fatigue [Unknown]
  - Abdominal distension [Not Recovered/Not Resolved]
  - Cardiac failure [Not Recovered/Not Resolved]
  - Oxygen saturation decreased [Unknown]
  - Oedema peripheral [Not Recovered/Not Resolved]
  - No therapeutic response [Unknown]
  - Pulmonary thrombosis [Unknown]
  - Pain [Unknown]

NARRATIVE: CASE EVENT DATE: 20140921
